FAERS Safety Report 21315185 (Version 1)
Quarter: 2022Q3

REPORT INFORMATION
  Report Type: Spontaneous
  Country: US (occurrence: US)
  Receive Date: 20220909
  Receipt Date: 20220909
  Transmission Date: 20221027
  Serious: No
  Sender: FDA-Public Use
  Company Number: US-INNOCOLL PHARMACEUTICALS LIMITED-2022INN00103

PATIENT
  Sex: Female

DRUGS (1)
  1. XARACOLL [Suspect]
     Active Substance: BUPIVACAINE
     Indication: Hernia repair
     Dosage: UNK, IMPLANTED IN LEFT SIDE

REACTIONS (3)
  - Muscle spasms [Recovered/Resolved]
  - Nerve compression [Recovering/Resolving]
  - Muscular weakness [Unknown]
